FAERS Safety Report 4379052-3 (Version None)
Quarter: 2004Q2

REPORT INFORMATION
  Report Type: 
  Country: None (occurrence: None)
  Receive Date: 20040615
  Receipt Date: 20040615
  Transmission Date: 20050107
  Serious: Yes (Life-Threatening, Hospitalization)
  Sender: FDA-Public Use
  Company Number: None

PATIENT
  Age: 5 Year
  Sex: Male
  Weight: 22.5 kg

DRUGS (4)
  1. METHOTREXATE [Suspect]
     Dosage: 20 MG /M2 PO
     Route: 048
     Dates: start: 20040521
  2. MERCAPTOPURINE [Suspect]
     Dosage: 75 MG/M2 PO
     Route: 048
     Dates: start: 20040524
  3. PREDNISONE [Concomitant]
  4. VINCRISTINE [Concomitant]

REACTIONS (9)
  - AGITATION [None]
  - CONVULSION [None]
  - DEPRESSED LEVEL OF CONSCIOUSNESS [None]
  - DISORIENTATION [None]
  - DISTURBANCE IN ATTENTION [None]
  - INCOHERENT [None]
  - MENTAL STATUS CHANGES [None]
  - NERVOUS SYSTEM DISORDER [None]
  - POSTURING [None]
